FAERS Safety Report 6029642-7 (Version None)
Quarter: 2009Q1

REPORT INFORMATION
  Report Type: 
  Country: None (occurrence: None)
  Receive Date: 20090107
  Receipt Date: 20090105
  Transmission Date: 20090719
  Serious: Yes (Other)
  Sender: FDA-Public Use
  Company Number: US-BAYER-200829212NA

PATIENT
  Age: 37 Year
  Sex: Female

DRUGS (1)
  1. AVELOX [Suspect]
     Indication: SINUSITIS
     Dosage: TOTAL DAILY DOSE: 400 MG  UNIT DOSE: 400 MG
     Route: 048
     Dates: start: 20080716, end: 20080717

REACTIONS (6)
  - ERYTHEMA [None]
  - HYPERSENSITIVITY [None]
  - MUSCLE TWITCHING [None]
  - OEDEMA PERIPHERAL [None]
  - PRURITUS [None]
  - SKIN WARM [None]
